FAERS Safety Report 8072059-4 (Version None)
Quarter: 2012Q1

REPORT INFORMATION
  Report Type: 
  Country: None (occurrence: None)
  Receive Date: 20120126
  Receipt Date: 20120118
  Transmission Date: 20120608
  Serious: Yes (Death)
  Sender: FDA-Public Use
  Company Number: US-CELGENEUS-163-21880-11090534

PATIENT
  Sex: Female

DRUGS (27)
  1. BUTALBITAL [Concomitant]
     Route: 065
  2. REVLIMID [Suspect]
     Dosage: 2.5 MILLIGRAM
     Route: 048
     Dates: start: 20110301
  3. DILAUDID [Concomitant]
     Route: 065
  4. INDERAL [Concomitant]
     Route: 065
  5. STEROIDS [Concomitant]
     Route: 041
     Dates: start: 20110201
  6. WHOLE BLOOD [Concomitant]
     Route: 065
  7. REVLIMID [Suspect]
     Dosage: 5 MILLIGRAM
     Route: 048
     Dates: start: 20110101, end: 20110801
  8. CELEXA [Concomitant]
     Route: 065
  9. IMDUR [Concomitant]
     Route: 065
  10. MELPHALAN [Concomitant]
     Route: 065
  11. HEPARIN [Concomitant]
     Route: 041
     Dates: start: 20110201
  12. ZOCOR [Concomitant]
     Route: 065
  13. NITRATES [Concomitant]
     Route: 065
  14. ASPIRIN [Concomitant]
     Route: 065
  15. COMBIGAN [Concomitant]
     Route: 065
  16. PROMETHAZINE [Concomitant]
     Route: 065
  17. SIMVASTATIN [Concomitant]
     Route: 065
  18. SOLU-MEDROL [Concomitant]
     Route: 041
  19. PREDNISONE [Concomitant]
     Route: 065
  20. VALTREX [Concomitant]
     Route: 065
  21. SODIUM BICARBONATE [Concomitant]
     Indication: METABOLIC ACIDOSIS
     Route: 065
     Dates: start: 20110201
  22. VELCADE [Concomitant]
     Route: 065
  23. MAGNESIUM  OXIDE [Concomitant]
     Route: 065
  24. REVLIMID [Suspect]
     Indication: MULTIPLE MYELOMA
     Dosage: 25 MILLIGRAM
     Route: 048
     Dates: start: 20070110
  25. ZOMETA [Concomitant]
     Route: 065
  26. VITAMIN B-12 [Concomitant]
     Indication: VITAMIN B12 DEFICIENCY
     Route: 065
  27. MUCOMYST [Concomitant]
     Route: 065

REACTIONS (2)
  - PANCYTOPENIA [None]
  - RENAL FAILURE [None]
